FAERS Safety Report 8420417-8 (Version None)
Quarter: 2012Q2

REPORT INFORMATION
  Report Type: 
  Country: None (occurrence: None)
  Receive Date: 20120607
  Receipt Date: 20120604
  Transmission Date: 20120825
  Serious: Yes (Hospitalization, Other)
  Sender: FDA-Public Use
  Company Number: US-ELI_LILLY_AND_COMPANY-US201005000632

PATIENT
  Sex: Male
  Weight: 99.773 kg

DRUGS (6)
  1. LEVAQUIN [Concomitant]
     Indication: ANTIBIOTIC THERAPY
  2. LIPITOR [Concomitant]
     Indication: BLOOD CHOLESTEROL
  3. METFORMIN HCL [Concomitant]
  4. BYETTA [Suspect]
  5. BENICAR [Concomitant]
     Indication: BLOOD PRESSURE
  6. FUROSEMIDE [Concomitant]
     Indication: DIURETIC THERAPY

REACTIONS (3)
  - PANCREATITIS [None]
  - MOTOR DYSFUNCTION [None]
  - RENAL FAILURE [None]
